FAERS Safety Report 25422962 (Version 1)
Quarter: 2025Q2

REPORT INFORMATION
  Report Type: Spontaneous
  Country: US (occurrence: None)
  Receive Date: 20250610
  Receipt Date: 20250610
  Transmission Date: 20250717
  Serious: Yes (Hospitalization)
  Sender: FDA-CTU
  Company Number: None

PATIENT
  Age: 87 Year
  Sex: Male

DRUGS (2)
  1. APIXABAN [Suspect]
     Active Substance: APIXABAN
     Indication: Atrial fibrillation
     Dosage: FREQUENCY : TWICE A DAY;?
     Route: 048
  2. ASPIRIN 81MG [Suspect]
     Active Substance: ASPIRIN
     Dosage: FREQUENCY : DAILY;?
     Route: 048

REACTIONS (4)
  - Haematochezia [None]
  - Haemorrhoidal haemorrhage [None]
  - Diverticulum intestinal haemorrhagic [None]
  - Therapy interrupted [None]

NARRATIVE: CASE EVENT DATE: 20250526
